FAERS Safety Report 5211511-3 (Version None)
Quarter: 2007Q1

REPORT INFORMATION
  Report Type: 
  Country: None (occurrence: None)
  Receive Date: 20070116
  Receipt Date: 20070108
  Transmission Date: 20070707
  Serious: Yes (Hospitalization)
  Sender: FDA-Public Use
  Company Number: 2005P1000453

PATIENT
  Age: 64 Year
  Sex: Male
  Weight: 65 kg

DRUGS (11)
  1. RETEPLASE (REEPLASE) [Suspect]
     Indication: ACUTE MYOCARDIAL INFARCTION
     Dosage: IV
     Route: 042
     Dates: start: 20040531, end: 20040531
  2. ABCIXIMAB (ABCIXIMAB) [Suspect]
     Indication: ACUTE MYOCARDIAL INFARCTION
     Dosage: IV
     Route: 042
     Dates: start: 20040531, end: 20040531
  3. WARFARIN SODIUM [Concomitant]
  4. AMIODARONE HCL [Concomitant]
  5. CHOLESTEROL- AND TRIGLYCERIDE REDUCERS [Concomitant]
  6. FUROSEMIDE [Concomitant]
  7. PERINDOPRIL ERBUMINE [Concomitant]
  8. ASPIRIN [Concomitant]
  9. DIGOXIN [Concomitant]
  10. TICLID [Concomitant]
  11. PROMAZINE HYDROCHLORIDE [Concomitant]

REACTIONS (15)
  - AKINESIA [None]
  - AORTIC VALVE INCOMPETENCE [None]
  - ATRIAL FIBRILLATION [None]
  - CARDIAC ARREST [None]
  - DILATATION ATRIAL [None]
  - DILATATION VENTRICULAR [None]
  - EMBOLISM [None]
  - MITRAL VALVE INCOMPETENCE [None]
  - MITRAL VALVE PROLAPSE [None]
  - NO THERAPEUTIC RESPONSE [None]
  - PERIPHERAL CIRCULATORY FAILURE [None]
  - PULMONARY ARTERIAL PRESSURE ABNORMAL [None]
  - THROMBOSIS [None]
  - TRICUSPID VALVE INCOMPETENCE [None]
  - VENTRICULAR FIBRILLATION [None]
